FAERS Safety Report 17072356 (Version 3)
Quarter: 2019Q4

REPORT INFORMATION
  Report Type: Spontaneous
  Country: PT (occurrence: PT)
  Receive Date: 20191125
  Receipt Date: 20191220
  Transmission Date: 20200122
  Serious: Yes (Hospitalization, Other)
  Sender: FDA-Public Use
  Company Number: PT-PFIZER INC-2019504498

PATIENT
  Age: 88 Year
  Sex: Female

DRUGS (2)
  1. AMIODARONE HCL [Suspect]
     Active Substance: AMIODARONE HYDROCHLORIDE
     Indication: CARDIAC FAILURE
     Dosage: UNK
  2. AMIODARONE HCL [Suspect]
     Active Substance: AMIODARONE HYDROCHLORIDE
     Indication: ATRIAL FIBRILLATION

REACTIONS (11)
  - Hepatotoxicity [Recovered/Resolved]
  - Hepatocellular injury [Recovered/Resolved]
  - Hypoxia [Recovered/Resolved]
  - Pyrexia [Recovered/Resolved]
  - Pulmonary toxicity [Recovered/Resolved]
  - Pneumonia [Recovered/Resolved]
  - Hepatic failure [Recovered/Resolved]
  - Cholestasis [Recovered/Resolved]
  - Hepatic function abnormal [Recovered/Resolved]
  - Dyspnoea [Recovered/Resolved]
  - Respiratory tract infection [Recovered/Resolved]
